FAERS Safety Report 19238532 (Version 1)
Quarter: 2021Q2

REPORT INFORMATION
  Report Type: Spontaneous
  Country: US (occurrence: US)
  Receive Date: 20210510
  Receipt Date: 20210510
  Transmission Date: 20210717
  Serious: No
  Sender: FDA-Public Use
  Company Number: US-ASTRAZENECA-2021A400053

PATIENT
  Age: 63 Year
  Sex: Female

DRUGS (8)
  1. OMEPRAZOLE. [Suspect]
     Active Substance: OMEPRAZOLE
     Route: 065
  2. NEXIUM [Suspect]
     Active Substance: ESOMEPRAZOLE MAGNESIUM
     Route: 065
  3. BACTRUM [Suspect]
     Active Substance: CEFTRIAXONE SODIUM\TAZOBACTAM SODIUM
     Route: 065
  4. PFIZER?BIONTECH COVID?19 VACCINE [Suspect]
     Active Substance: TOZINAMERAN
     Route: 065
     Dates: start: 20210129
  5. SYNTHROID [Concomitant]
     Active Substance: LEVOTHYROXINE SODIUM
  6. TETRACYCLINE [Suspect]
     Active Substance: TETRACYCLINE
     Route: 065
  7. VITAMIN E [Concomitant]
     Active Substance: .ALPHA.-TOCOPHEROL
  8. VITAMIN D3 [Concomitant]
     Active Substance: CHOLECALCIFEROL

REACTIONS (10)
  - Pain in extremity [Unknown]
  - Lymphadenopathy [Unknown]
  - Pharyngeal swelling [Unknown]
  - Injection site pain [Unknown]
  - Injection site pruritus [Unknown]
  - Drug hypersensitivity [Unknown]
  - Injection site erythema [Unknown]
  - Injection site swelling [Unknown]
  - Wheezing [Unknown]
  - Nausea [Unknown]

NARRATIVE: CASE EVENT DATE: 20210225
